FAERS Safety Report 19006290 (Version 2)
Quarter: 2021Q2

REPORT INFORMATION
  Report Type: Spontaneous
  Country: IT (occurrence: IT)
  Receive Date: 20210315
  Receipt Date: 20210409
  Transmission Date: 20210717
  Serious: Yes (Hospitalization, Other)
  Sender: FDA-Public Use
  Company Number: IT-AUROBINDO-AUR-APL-2021-009810

PATIENT
  Age: 15 Year
  Sex: Male

DRUGS (3)
  1. TACHIFENE [Suspect]
     Active Substance: ACETAMINOPHEN\IBUPROFEN
     Indication: ANALGESIC THERAPY
     Dosage: 650 MILLIGRAM TOTAL
     Route: 048
     Dates: start: 20210222
  2. PARACETAMOL TABLET [Suspect]
     Active Substance: ACETAMINOPHEN
     Dosage: 1000 MILLIGRAM (TOTAL)
     Route: 048
     Dates: start: 20210222, end: 20210222
  3. PARACETAMOL TABLET [Suspect]
     Active Substance: ACETAMINOPHEN
     Indication: ANALGESIC THERAPY
     Dosage: 5000 MILLIGRAM (TOTAL)
     Route: 048
     Dates: start: 20210222, end: 20210222

REACTIONS (6)
  - Vomiting [Recovered/Resolved]
  - Rash [Recovered/Resolved]
  - Abdominal pain upper [Recovered/Resolved]
  - Intentional self-injury [Recovered/Resolved]
  - Headache [Recovered/Resolved]
  - Poisoning [Recovered/Resolved]

NARRATIVE: CASE EVENT DATE: 20210222
